FAERS Safety Report 9725029 (Version 2)
Quarter: 2014Q1

REPORT INFORMATION
  Report Type: Report from Study
  Country: FR (occurrence: FR)
  Receive Date: 20131203
  Receipt Date: 20140218
  Transmission Date: 20141002
  Serious: Yes (Death, Hospitalization)
  Sender: FDA-Public Use
  Company Number: FR-ROCHE-1311515

PATIENT
  Age: 72 Year
  Sex: Male
  Weight: 65 kg

DRUGS (3)
  1. ERLOTINIB [Suspect]
     Indication: PANCREATIC CARCINOMA METASTATIC
     Dosage: LAST DOSE 50 MG ON 31/MAY/2013 PRIOR TO SAE
     Route: 048
     Dates: start: 20121119
  2. TRASTUZUMAB [Suspect]
     Indication: PANCREATIC CARCINOMA
     Dosage: LAST DOSE 130 MG ON 12 AUG 2013 PRIOR TO SAE
     Route: 042
     Dates: start: 20121119
  3. GEMCITABINE [Suspect]
     Indication: PANCREATIC CARCINOMA METASTATIC
     Dosage: LAST DOSE PRIOR TO SAE ON 12 AUG 2013
     Route: 042
     Dates: start: 20121119

REACTIONS (1)
  - Small intestinal obstruction [Fatal]
